FAERS Safety Report 15452976 (Version 2)
Quarter: 2019Q1

REPORT INFORMATION
  Report Type: Spontaneous
  Country: US (occurrence: US)
  Receive Date: 20181001
  Receipt Date: 20190208
  Transmission Date: 20190417
  Serious: No
  Sender: FDA-Public Use
  Company Number: US-ELI_LILLY_AND_COMPANY-US201809010209

PATIENT
  Sex: Female

DRUGS (1)
  1. FORTEO [Suspect]
     Active Substance: TERIPARATIDE
     Indication: PRODUCT USED FOR UNKNOWN INDICATION
     Dosage: UNK UNK, UNKNOWN
     Route: 065
     Dates: start: 201701, end: 20190108

REACTIONS (6)
  - Gait disturbance [Unknown]
  - Osteoarthritis [Unknown]
  - Fall [Unknown]
  - Spinal fracture [Unknown]
  - Muscle atrophy [Unknown]
  - Limb discomfort [Unknown]
